FAERS Safety Report 16776676 (Version 1)
Quarter: 2019Q3

REPORT INFORMATION
  Report Type: Report from Study
  Country: JP (occurrence: JP)
  Receive Date: 20190905
  Receipt Date: 20190905
  Transmission Date: 20191005
  Serious: Yes (Other)
  Sender: FDA-Public Use
  Company Number: JP-SAKK-2019SA202134AA

PATIENT
  Age: 64 Year
  Sex: Male
  Weight: 62 kg

DRUGS (50)
  1. AFLIBERCEPT [Suspect]
     Active Substance: AFLIBERCEPT
     Dosage: 4 MG/KG, 1X
     Route: 041
     Dates: start: 20180928, end: 20180928
  2. IRINOTECAN [Suspect]
     Active Substance: IRINOTECAN
     Dosage: 120 MG/M2, 1X
     Route: 065
     Dates: start: 20181226, end: 20181226
  3. FLUOROURACIL. [Suspect]
     Active Substance: FLUOROURACIL
     Dosage: 400 MG/M2, QOW
     Route: 040
     Dates: start: 20180803, end: 20180824
  4. FLUOROURACIL. [Suspect]
     Active Substance: FLUOROURACIL
     Dosage: 2000 MG/M2, Q3W
     Route: 041
     Dates: start: 20190111, end: 20190201
  5. CALCIUM FOLINATE [Suspect]
     Active Substance: LEUCOVORIN CALCIUM
     Indication: COLON CANCER
     Dosage: 200 MG/M2, 1X
     Route: 065
     Dates: start: 20190510, end: 20190510
  6. CALCIUM FOLINATE [Suspect]
     Active Substance: LEUCOVORIN CALCIUM
     Dosage: 200 MG/M2, 1X
     Route: 065
     Dates: start: 20180928, end: 20180928
  7. CALCIUM FOLINATE [Suspect]
     Active Substance: LEUCOVORIN CALCIUM
     Dosage: 200 MG/M2, 1X
     Route: 065
     Dates: start: 20181226, end: 20181226
  8. IRINOTECAN [Suspect]
     Active Substance: IRINOTECAN
     Dosage: 120 MG/M2, Q3W
     Route: 065
     Dates: start: 20190111, end: 20190201
  9. FLUOROURACIL. [Suspect]
     Active Substance: FLUOROURACIL
     Dosage: 300 MG/M2, QOW
     Route: 040
     Dates: start: 20181015, end: 20181210
  10. FLUOROURACIL. [Suspect]
     Active Substance: FLUOROURACIL
     Dosage: 300 MG/M2, Q3W
     Route: 040
     Dates: start: 20190218, end: 20190311
  11. AFLIBERCEPT [Suspect]
     Active Substance: AFLIBERCEPT
     Dosage: 4 MG/KG, Q3W
     Route: 041
     Dates: start: 20190111, end: 20190201
  12. AFLIBERCEPT [Suspect]
     Active Substance: AFLIBERCEPT
     Dosage: 4 MG/KG, Q3W
     Route: 041
     Dates: start: 20190218, end: 20190311
  13. AFLIBERCEPT [Suspect]
     Active Substance: AFLIBERCEPT
     Dosage: 4 MG/KG, 1X
     Route: 041
     Dates: start: 20190708, end: 20190708
  14. IRINOTECAN [Suspect]
     Active Substance: IRINOTECAN
     Dosage: 120 MG/M2, 1X
     Route: 065
     Dates: start: 20180928, end: 20180928
  15. IRINOTECAN [Suspect]
     Active Substance: IRINOTECAN
     Dosage: 120 MG/M2, 1X
     Route: 065
     Dates: start: 20190708, end: 20190708
  16. FLUOROURACIL. [Suspect]
     Active Substance: FLUOROURACIL
     Dosage: 2000 MG/M2, 1X
     Route: 041
     Dates: start: 20181226, end: 20181226
  17. FLUOROURACIL. [Suspect]
     Active Substance: FLUOROURACIL
     Dosage: 2000 MG/M2, 1X
     Route: 041
     Dates: start: 20190610, end: 20190610
  18. AFLIBERCEPT [Suspect]
     Active Substance: AFLIBERCEPT
     Indication: COLON CANCER
     Dosage: 4 MG/KG, 1X
     Route: 041
     Dates: start: 20190510, end: 20190510
  19. AFLIBERCEPT [Suspect]
     Active Substance: AFLIBERCEPT
     Dosage: 4 MG/KG, 1X
     Route: 041
     Dates: start: 20190610, end: 20190610
  20. CALCIUM FOLINATE [Suspect]
     Active Substance: LEUCOVORIN CALCIUM
     Indication: RECTAL CANCER
     Dosage: 200 MG/M2, Q3W
     Route: 065
     Dates: start: 20180803, end: 20180824
  21. IRINOTECAN [Suspect]
     Active Substance: IRINOTECAN
     Indication: COLON CANCER
     Dosage: 120 MG/M2, 1X
     Route: 065
     Dates: start: 20190510, end: 20190510
  22. FLUOROURACIL. [Suspect]
     Active Substance: FLUOROURACIL
     Indication: RECTAL CANCER
     Dosage: 2000 MG/M2, 1X
     Route: 041
     Dates: start: 20190510, end: 20190510
  23. FLUOROURACIL. [Suspect]
     Active Substance: FLUOROURACIL
     Dosage: 2000 MG/M2, 1X
     Route: 041
     Dates: start: 20180928, end: 20180928
  24. FLUOROURACIL. [Suspect]
     Active Substance: FLUOROURACIL
     Dosage: 300 MG/M2, 1X
     Route: 040
     Dates: start: 20181226, end: 20181226
  25. FLUOROURACIL. [Suspect]
     Active Substance: FLUOROURACIL
     Dosage: 300 MG/M2, Q3W
     Route: 040
     Dates: start: 20190111, end: 20190201
  26. FLUOROURACIL. [Suspect]
     Active Substance: FLUOROURACIL
     Dosage: 300 MG/M2, 1X
     Route: 040
     Dates: start: 20190708, end: 20190708
  27. AFLIBERCEPT [Suspect]
     Active Substance: AFLIBERCEPT
     Dosage: 4 MG/KG, QOW
     Route: 041
     Dates: start: 20181015, end: 20181210
  28. CALCIUM FOLINATE [Suspect]
     Active Substance: LEUCOVORIN CALCIUM
     Dosage: 200 MG/M2, QOW
     Route: 065
     Dates: start: 20181015, end: 20181210
  29. CALCIUM FOLINATE [Suspect]
     Active Substance: LEUCOVORIN CALCIUM
     Dosage: 200 MG/M2, Q3W
     Route: 065
     Dates: start: 20190111, end: 20190201
  30. IRINOTECAN [Suspect]
     Active Substance: IRINOTECAN
     Dosage: 120 MG/M2, 1X
     Route: 065
     Dates: start: 20190610, end: 20190610
  31. FLUOROURACIL. [Suspect]
     Active Substance: FLUOROURACIL
     Dosage: 2000 MG/M2, QOW
     Route: 041
     Dates: start: 20190325, end: 20190422
  32. AFLIBERCEPT [Suspect]
     Active Substance: AFLIBERCEPT
     Dosage: 4 MG/KG, 1X
     Route: 041
     Dates: start: 20181226, end: 20181226
  33. AFLIBERCEPT [Suspect]
     Active Substance: AFLIBERCEPT
     Dosage: 4 MG/KG, QOW
     Route: 041
     Dates: start: 20190325, end: 20190422
  34. IRINOTECAN [Suspect]
     Active Substance: IRINOTECAN
     Indication: RECTAL CANCER
     Dosage: 150 MG/M2, Q3W
     Route: 065
     Dates: start: 20180803, end: 20180824
  35. FLUOROURACIL. [Suspect]
     Active Substance: FLUOROURACIL
     Indication: COLON CANCER
     Dosage: 300 MG/M2, 1X
     Route: 040
     Dates: start: 20190510, end: 20190510
  36. AFLIBERCEPT [Suspect]
     Active Substance: AFLIBERCEPT
     Indication: RECTAL CANCER
     Dosage: 4 MG/KG, Q3W
     Route: 041
     Dates: start: 20180803, end: 20180824
  37. CALCIUM FOLINATE [Suspect]
     Active Substance: LEUCOVORIN CALCIUM
     Dosage: 200 MG/M2, 1X
     Route: 065
     Dates: start: 20190610, end: 20190610
  38. IRINOTECAN [Suspect]
     Active Substance: IRINOTECAN
     Dosage: 120 MG/M2, Q3W
     Route: 065
     Dates: start: 20190218, end: 20190311
  39. IRINOTECAN [Suspect]
     Active Substance: IRINOTECAN
     Dosage: 120 MG/M2, QOW
     Route: 065
     Dates: start: 20190325, end: 20190422
  40. FLUOROURACIL. [Suspect]
     Active Substance: FLUOROURACIL
     Dosage: 2400 MG/M2, QOW
     Route: 041
     Dates: start: 20180803, end: 20180824
  41. FLUOROURACIL. [Suspect]
     Active Substance: FLUOROURACIL
     Dosage: 300 MG/M2, 1X
     Route: 040
     Dates: start: 20180928, end: 20180928
  42. FLUOROURACIL. [Suspect]
     Active Substance: FLUOROURACIL
     Dosage: 2000 MG/M2, QOW
     Route: 041
     Dates: start: 20181015, end: 20181210
  43. FLUOROURACIL. [Suspect]
     Active Substance: FLUOROURACIL
     Dosage: 2000 MG/M2, Q3W
     Route: 041
     Dates: start: 20190218, end: 20190311
  44. FLUOROURACIL. [Suspect]
     Active Substance: FLUOROURACIL
     Dosage: 300 MG/M2, 1X
     Route: 040
     Dates: start: 20190610, end: 20190610
  45. FLUOROURACIL. [Suspect]
     Active Substance: FLUOROURACIL
     Dosage: 2000 MG/M2, 1X
     Route: 041
     Dates: start: 20190708, end: 20190708
  46. CALCIUM FOLINATE [Suspect]
     Active Substance: LEUCOVORIN CALCIUM
     Dosage: 200 MG/M2, Q3W
     Route: 065
     Dates: start: 20190218, end: 20190311
  47. CALCIUM FOLINATE [Suspect]
     Active Substance: LEUCOVORIN CALCIUM
     Dosage: 200 MG/M2, QOW
     Route: 065
     Dates: start: 20190325, end: 20190422
  48. CALCIUM FOLINATE [Suspect]
     Active Substance: LEUCOVORIN CALCIUM
     Dosage: 200 MG/M2, 1X
     Route: 065
     Dates: start: 20190708, end: 20190708
  49. IRINOTECAN [Suspect]
     Active Substance: IRINOTECAN
     Dosage: 120 MG/M2, QOW
     Route: 065
     Dates: start: 20181015, end: 20181210
  50. FLUOROURACIL. [Suspect]
     Active Substance: FLUOROURACIL
     Dosage: 300 MG/M2, QOW
     Route: 040
     Dates: start: 20190325, end: 20190422

REACTIONS (4)
  - Dehydration [Recovered/Resolved]
  - Proteinuria [Recovered/Resolved]
  - Renal impairment [Recovered/Resolved]
  - Decreased appetite [Recovered/Resolved]

NARRATIVE: CASE EVENT DATE: 20190527
